FAERS Safety Report 10149857 (Version 2)
Quarter: 2014Q2

REPORT INFORMATION
  Report Type: Spontaneous
  Country: US (occurrence: US)
  Receive Date: 20140502
  Receipt Date: 20140604
  Transmission Date: 20141212
  Serious: Yes (Hospitalization)
  Sender: FDA-Public Use
  Company Number: US-ASTELLAS-2014US004545

PATIENT
  Age: 69 Year
  Sex: Female

DRUGS (1)
  1. PROGRAF [Suspect]
     Indication: RENAL TRANSPLANT
     Dosage: 0.5 MG, EVERY 12 HOURS
     Route: 048
     Dates: start: 20130504

REACTIONS (1)
  - Cardiac failure congestive [Not Recovered/Not Resolved]
